FAERS Safety Report 8610057 (Version 3)
Quarter: 2013Q1

REPORT INFORMATION
  Report Type: Spontaneous
  Country: US (occurrence: US)
  Receive Date: 20120612
  Receipt Date: 20130326
  Transmission Date: 20140127
  Serious: Yes (Congenital Anomaly, Other)
  Sender: FDA-Public Use
  Company Number: US-PFIZER INC-2012137173

PATIENT
  Sex: Male

DRUGS (1)
  1. ZOLOFT [Suspect]
     Dosage: UNK
     Route: 064
     Dates: start: 200811, end: 2009

REACTIONS (7)
  - Maternal exposure timing unspecified [Unknown]
  - Congenital umbilical hernia [Unknown]
  - Congenital anomaly [Not Recovered/Not Resolved]
  - Infantile asthma [Unknown]
  - Developmental delay [Unknown]
  - Dermal cyst [Unknown]
  - Premature baby [Unknown]
